FAERS Safety Report 24056541 (Version 1)
Quarter: 2024Q3

REPORT INFORMATION
  Report Type: Spontaneous
  Country: CN (occurrence: CN)
  Receive Date: 20240705
  Receipt Date: 20240705
  Transmission Date: 20241017
  Serious: Yes (Hospitalization, Other)
  Sender: MERCK
  Company Number: CN-009507513-2407CHN001048

PATIENT
  Age: 61 Year
  Sex: Male

DRUGS (2)
  1. KEYTRUDA [Suspect]
     Active Substance: PEMBROLIZUMAB
     Indication: Malignant melanoma
     Dosage: 200MG, Q3W
     Route: 041
     Dates: start: 20240320, end: 20240320
  2. KEYTRUDA [Suspect]
     Active Substance: PEMBROLIZUMAB
     Dosage: 200MG, Q3W
     Route: 041
     Dates: start: 20240417, end: 20240417

REACTIONS (6)
  - Troponin I increased [Not Recovered/Not Resolved]
  - Myocardial injury [Unknown]
  - Immune-mediated myocarditis [Unknown]
  - Adrenal insufficiency [Unknown]
  - Drug eruption [Unknown]
  - Inappropriate schedule of product administration [Unknown]

NARRATIVE: CASE EVENT DATE: 20240621
